FAERS Safety Report 9978436 (Version 1)
Quarter: 2014Q1

REPORT INFORMATION
  Report Type: Report from Study
  Country: US (occurrence: US)
  Receive Date: 20140306
  Receipt Date: 20140306
  Transmission Date: 20141002
  Serious: No
  Sender: FDA-Public Use
  Company Number: US-ABBVIE-13P-163-1171306-00

PATIENT
  Sex: Female
  Weight: 72.64 kg

DRUGS (9)
  1. HUMIRA [Suspect]
     Indication: COLITIS ULCERATIVE
     Dates: start: 2009, end: 2009
  2. HUMIRA [Suspect]
     Dates: start: 2009, end: 2009
  3. HUMIRA [Suspect]
     Dates: start: 2009, end: 2013
  4. HUMIRA [Suspect]
     Dates: start: 2013
  5. DELSICOL [Concomitant]
     Indication: COLITIS ULCERATIVE
  6. CITRACEL [Concomitant]
     Indication: COLITIS ULCERATIVE
  7. MULTIVITAMINS [Concomitant]
     Indication: VITAMIN SUPPLEMENTATION
  8. CALCIUM WITH VITAMIN D [Concomitant]
     Indication: VITAMIN SUPPLEMENTATION
  9. MUCINEX [Concomitant]
     Indication: HYPERSENSITIVITY

REACTIONS (1)
  - Upper respiratory tract infection [Recovered/Resolved]
